FAERS Safety Report 19135800 (Version 2)
Quarter: 2021Q2

REPORT INFORMATION
  Report Type: Spontaneous
  Country: US (occurrence: US)
  Receive Date: 20210414
  Receipt Date: 20210423
  Transmission Date: 20210717
  Serious: Yes (Hospitalization)
  Sender: FDA-Public Use
  Company Number: US-ALLERGAN-2112075US

PATIENT
  Sex: Female

DRUGS (4)
  1. MEMANTINE HCL UNK [Suspect]
     Active Substance: MEMANTINE HYDROCHLORIDE
     Indication: DEMENTIA ALZHEIMER^S TYPE
     Dosage: 10 MG, BID
     Route: 048
     Dates: start: 201804, end: 202003
  2. LEVOTHYROXINE. [Concomitant]
     Active Substance: LEVOTHYROXINE
     Indication: HYPOTHYROIDISM
  3. SOLIFENACIN [Concomitant]
     Active Substance: SOLIFENACIN
     Indication: BLADDER DISORDER
     Dosage: 1 DF, QD
  4. POTASSIUM [Concomitant]
     Active Substance: POTASSIUM

REACTIONS (3)
  - Functional gastrointestinal disorder [Recovered/Resolved]
  - Abdominal pain upper [Recovered/Resolved]
  - Abdominal distension [Recovered/Resolved]

NARRATIVE: CASE EVENT DATE: 202001
